FAERS Safety Report 11416494 (Version 4)
Quarter: 2015Q4

REPORT INFORMATION
  Report Type: Spontaneous
  Country: US (occurrence: US)
  Receive Date: 20150825
  Receipt Date: 20151116
  Transmission Date: 20160304
  Serious: Yes (Hospitalization, Other)
  Sender: FDA-Public Use
  Company Number: US-PFIZER INC-2015282230

PATIENT
  Age: 50 Year
  Sex: Male

DRUGS (7)
  1. CELEBREX [Suspect]
     Active Substance: CELECOXIB
     Indication: NERVOUS SYSTEM DISORDER
     Dosage: UNKNOWN
  2. ELIQUIS [Concomitant]
     Active Substance: APIXABAN
     Indication: THROMBOSIS
     Dosage: 5 MG, UNK
  3. LYRICA [Suspect]
     Active Substance: PREGABALIN
     Indication: BURNING SENSATION
  4. CELEBREX [Suspect]
     Active Substance: CELECOXIB
     Dosage: UNK, 3X/DAY
  5. LYRICA [Suspect]
     Active Substance: PREGABALIN
     Indication: PAIN
     Dosage: 50 MG, 3X/DAY
     Route: 048
  6. LYRICA [Suspect]
     Active Substance: PREGABALIN
     Indication: PAIN
  7. LISINOPRIL. [Concomitant]
     Active Substance: LISINOPRIL
     Indication: BLOOD PRESSURE MEASUREMENT
     Dosage: 10 MG, UNK

REACTIONS (2)
  - Arthropathy [Not Recovered/Not Resolved]
  - Thrombosis [Not Recovered/Not Resolved]
